FAERS Safety Report 8977415 (Version 1)
Quarter: 2012Q4

REPORT INFORMATION
  Report Type: 
  Country: US (occurrence: US)
  Receive Date: 20121220
  Receipt Date: 20121220
  Transmission Date: 20130627
  Serious: No
  Sender: FDA-Public Use
  Company Number: US-PFIZER INC-2012318413

PATIENT
  Age: 98 Year
  Sex: Female

DRUGS (5)
  1. REVATIO [Suspect]
     Dosage: 20 mg, UNK
  2. METOPROLOL TARTRATE [Interacting]
     Dosage: 25 mg, UNK
  3. SPIRONOLACTONE [Interacting]
     Dosage: 25 mg, UNK
  4. DIGOXIN [Interacting]
     Dosage: 0.125 mg, UNK
  5. BUMEX [Interacting]
     Dosage: 1 mg, UNK

REACTIONS (1)
  - Drug interaction [Unknown]
